FAERS Safety Report 8137577-9 (Version None)
Quarter: 2012Q1

REPORT INFORMATION
  Report Type: 
  Country: None (occurrence: None)
  Receive Date: 20120215
  Receipt Date: 20120209
  Transmission Date: 20120608
  Serious: No
  Sender: FDA-Public Use
  Company Number: US-PFIZER INC-2012036489

PATIENT
  Sex: Female
  Weight: 53.968 kg

DRUGS (4)
  1. TRAZODONE [Concomitant]
     Dosage: UNK
  2. KLONOPIN [Concomitant]
     Dosage: UNK
  3. ROZEREM [Concomitant]
     Dosage: UNK
  4. CLINDAMYCIN PHOSPHATE [Suspect]
     Indication: FUNGAL INFECTION
     Dosage: UNK, 1X/DAY
     Route: 067
     Dates: start: 20120207

REACTIONS (2)
  - VULVOVAGINAL BURNING SENSATION [None]
  - APPLICATION SITE PAIN [None]
